FAERS Safety Report 8763882 (Version 1)
Quarter: 2012Q4

REPORT INFORMATION
  Report Type: 
  Country: AR (occurrence: AR)
  Receive Date: 20120831
  Receipt Date: 20120831
  Transmission Date: 20130627
  Serious: Yes (Other)
  Sender: FDA-Public Use
  Company Number: PHHY2012AR075160

PATIENT
  Sex: Male

DRUGS (2)
  1. EXELON PATCH [Suspect]
     Dosage: 4.6 mg, daily (1 patch daily)
     Route: 062
  2. GALVUS [Suspect]
     Indication: DIABETES MELLITUS
     Dosage: 50 mg, UNK

REACTIONS (3)
  - Muscle rupture [Recovering/Resolving]
  - Erythema [Recovered/Resolved]
  - Skin irritation [Recovered/Resolved]
